FAERS Safety Report 7298277-0 (Version None)
Quarter: 2011Q1

REPORT INFORMATION
  Report Type: 
  Country: None (occurrence: None)
  Receive Date: 20110214
  Receipt Date: 20110214
  Transmission Date: 20110831
  Serious: No
  Sender: FDA-Public Use
  Company Number: None

PATIENT
  Age: 63 Year
  Sex: Male

DRUGS (11)
  1. OMEPRAZOLE [Concomitant]
  2. AMLODIPINE [Concomitant]
  3. CLONAZEPAM [Concomitant]
  4. DIVALPROEX [Concomitant]
  5. CLONIDINE [Concomitant]
  6. DIVALPROEX [Concomitant]
  7. VIMPAT [Suspect]
     Indication: CONVULSION
     Dosage: 200 MG BID PO
     Route: 048
     Dates: start: 20100831, end: 20110211
  8. HALOPERIDOL [Concomitant]
  9. CARBAMAZEPINE [Concomitant]
  10. PEG [Concomitant]
  11. ASPIRIN [Concomitant]

REACTIONS (1)
  - ATRIOVENTRICULAR BLOCK SECOND DEGREE [None]
